FAERS Safety Report 9152325 (Version 5)
Quarter: 2013Q2

REPORT INFORMATION
  Report Type: Spontaneous
  Country: US (occurrence: US)
  Receive Date: 20130308
  Receipt Date: 20130419
  Transmission Date: 20140414
  Serious: No
  Sender: FDA-Public Use
  Company Number: US-ASTRAZENECA-2013SE11258

PATIENT
  Age: 82 Year
  Sex: Female
  Weight: 74.8 kg

DRUGS (10)
  1. NEXIUM [Suspect]
     Indication: GASTROOESOPHAGEAL REFLUX DISEASE
     Route: 048
     Dates: end: 201201
  2. PRILOSEC [Suspect]
     Indication: GASTROOESOPHAGEAL REFLUX DISEASE
     Route: 048
     Dates: start: 201201
  3. NORVASC [Concomitant]
     Indication: BLOOD PRESSURE ABNORMAL
  4. BLOOD PRESSURE PILL [Concomitant]
  5. ATIVAN [Concomitant]
  6. AMLOCITINE [Concomitant]
  7. ULTRACET [Concomitant]
  8. BENADRYL [Concomitant]
  9. B12 INJ [Concomitant]
  10. PERI-COLACE [Concomitant]

REACTIONS (15)
  - Blood pressure increased [Unknown]
  - Gastrooesophageal reflux disease [Unknown]
  - Aphagia [Unknown]
  - Regurgitation [Unknown]
  - Asthenia [Unknown]
  - Pain [Unknown]
  - Weight decreased [Unknown]
  - Gastric disorder [Unknown]
  - Eructation [Not Recovered/Not Resolved]
  - Malaise [Recovered/Resolved]
  - Abdominal pain upper [Unknown]
  - Vomiting [Unknown]
  - Off label use [Unknown]
  - Intentional drug misuse [Unknown]
  - Drug ineffective [Unknown]
